FAERS Safety Report 26208773 (Version 1)
Quarter: 2025Q4

REPORT INFORMATION
  Report Type: Spontaneous
  Country: US (occurrence: None)
  Receive Date: 20251228
  Receipt Date: 20251228
  Transmission Date: 20260118
  Serious: No
  Sender: FDA-CTU
  Company Number: None

PATIENT
  Age: 71 Year
  Sex: Male
  Weight: 99 kg

DRUGS (5)
  1. CYANOCOBALAMIN\SEMAGLUTIDE [Suspect]
     Active Substance: CYANOCOBALAMIN\SEMAGLUTIDE
     Indication: Weight decreased
     Dosage: OTHER QUANTITY : 1 INJECTION(S)?OTHER FREQUENCY : 1 PER WEEK
     Route: 058
     Dates: start: 20250910, end: 20251201
  2. Losarton [Concomitant]
  3. Carvideral [Concomitant]
  4. Rovevastatin [Concomitant]
  5. SEMAGLUTIDE [Suspect]
     Active Substance: SEMAGLUTIDE

REACTIONS (6)
  - Constipation [None]
  - Product substitution issue [None]
  - Dry mouth [None]
  - Taste disorder [None]
  - Bruxism [None]
  - Product dispensing issue [None]

NARRATIVE: CASE EVENT DATE: 20250928
